FAERS Safety Report 23840967 (Version 1)
Quarter: 2024Q2

REPORT INFORMATION
  Report Type: Spontaneous
  Country: PL (occurrence: PL)
  Receive Date: 20240510
  Receipt Date: 20240510
  Transmission Date: 20240715
  Serious: Yes (Death, Hospitalization, Other)
  Sender: FDA-Public Use
  Company Number: PL-SANDOZ-SDZ2024PL046780

PATIENT
  Sex: Female

DRUGS (1)
  1. METHOTREXATE [Suspect]
     Active Substance: METHOTREXATE
     Indication: Rheumatoid arthritis
     Dosage: 25 MG
     Route: 065

REACTIONS (14)
  - Respiratory failure [Fatal]
  - Pulmonary infarction [Fatal]
  - Pyrexia [Unknown]
  - Leukopenia [Unknown]
  - Thrombocytopenia [Unknown]
  - General physical health deterioration [Unknown]
  - Accidental overdose [Unknown]
  - Toxicity to various agents [Unknown]
  - Malaise [Unknown]
  - Oral fungal infection [Unknown]
  - Asthenia [Unknown]
  - Diarrhoea [Unknown]
  - Product communication issue [Unknown]
  - Inappropriate schedule of product administration [Unknown]
